FAERS Safety Report 19190007 (Version 1)
Quarter: 2021Q2

REPORT INFORMATION
  Report Type: Spontaneous
  Country: US (occurrence: US)
  Receive Date: 20210428
  Receipt Date: 20210428
  Transmission Date: 20210717
  Serious: Yes (Life-Threatening, Hospitalization, Other)
  Sender: FDA-Public Use
  Company Number: None

PATIENT
  Age: 86 Year
  Sex: Male
  Weight: 74 kg

DRUGS (2)
  1. ZOMETA [Suspect]
     Active Substance: ZOLEDRONIC ACID
     Dates: start: 20210422, end: 20210422
  2. NIVOLUMAB [Suspect]
     Active Substance: NIVOLUMAB
     Indication: HODGKIN^S DISEASE
     Dosage: ?          OTHER FREQUENCY:Q2WEEK;?
     Route: 042
     Dates: start: 20210422, end: 20210422

REACTIONS (7)
  - Pyrexia [None]
  - Hypotension [None]
  - Ventricular tachycardia [None]
  - Tremor [None]
  - Infusion related reaction [None]
  - Chills [None]
  - Stress cardiomyopathy [None]

NARRATIVE: CASE EVENT DATE: 20210422
